FAERS Safety Report 16383097 (Version 1)
Quarter: 2019Q2

REPORT INFORMATION
  Report Type: Spontaneous
  Country: US (occurrence: US)
  Receive Date: 20190603
  Receipt Date: 20190603
  Transmission Date: 20190711
  Serious: Yes (Other)
  Sender: FDA-Public Use
  Company Number: US-JUBILANT CADISTA PHARMACEUTICALS-2019JUB00204

PATIENT
  Age: 53 Year
  Sex: Male

DRUGS (2)
  1. NIACIN. [Suspect]
     Active Substance: NIACIN
     Dosage: 1 G, 1X/DAY [IN 2 DIVIDED DOSES]
     Route: 065
  2. NIACIN. [Suspect]
     Active Substance: NIACIN
     Dosage: 1.5 G, 1X/DAY [IN 2 DIVIDED DOSES]
     Route: 065

REACTIONS (1)
  - Maculopathy [Recovered/Resolved]
